FAERS Safety Report 13360081 (Version 1)
Quarter: 2017Q1

REPORT INFORMATION
  Report Type: Report from Study
  Country: AR (occurrence: AR)
  Receive Date: 20170322
  Receipt Date: 20170322
  Transmission Date: 20170429
  Serious: Yes (Death, Hospitalization)
  Sender: FDA-Public Use
  Company Number: PHHY2017AR043293

PATIENT
  Age: 76 Year
  Sex: Female

DRUGS (4)
  1. STALEVO [Suspect]
     Active Substance: CARBIDOPA\ENTACAPONE\LEVODOPA
     Dosage: 1 DF, TID (1 IN THE MORNING, 1 IN THE AFTERNOON AND 1 AT NIGHT)
     Route: 065
  2. CLONAZEPAM. [Concomitant]
     Active Substance: CLONAZEPAM
     Indication: INSOMNIA
     Dosage: 1 DF, QHS
     Route: 065
  3. STALEVO [Suspect]
     Active Substance: CARBIDOPA\ENTACAPONE\LEVODOPA
     Indication: PARKINSON^S DISEASE
     Dosage: 2 DF, QD
     Route: 065
  4. PARACETAMOL [Concomitant]
     Active Substance: ACETAMINOPHEN
     Indication: HEADACHE
     Dosage: SPORADICALLY
     Route: 065

REACTIONS (12)
  - Parkinson^s disease [Fatal]
  - Dyspnoea [Unknown]
  - Fluid intake reduced [Unknown]
  - Somnolence [Unknown]
  - Acute respiratory failure [Fatal]
  - Productive cough [Unknown]
  - Catarrh [Unknown]
  - Pneumonia [Unknown]
  - Decreased appetite [Unknown]
  - Listless [Unknown]
  - Scratch [Unknown]
  - Fall [Unknown]

NARRATIVE: CASE EVENT DATE: 2016
